FAERS Safety Report 6509964-3 (Version None)
Quarter: 2009Q4

REPORT INFORMATION
  Report Type: 
  Country: None (occurrence: None)
  Receive Date: 20091222
  Receipt Date: 20091218
  Transmission Date: 20100525
  Serious: Yes (Death, Hospitalization, Other)
  Sender: FDA-Public Use
  Company Number: PHEH2009US16002

PATIENT
  Sex: Male

DRUGS (11)
  1. EXJADE [Suspect]
     Indication: SICKLE CELL ANAEMIA
     Dosage: 1500 MG DAILY
     Route: 048
     Dates: start: 20060220, end: 20090501
  2. EXJADE [Suspect]
     Indication: IRON OVERLOAD
  3. AMIODARONE [Concomitant]
     Dosage: 200 MG, BID
     Route: 048
  4. COZAAR [Concomitant]
     Dosage: 50 MG, QD
  5. ENULOSE [Concomitant]
     Dosage: 10GM/15ML
  6. FOLIC ACID [Concomitant]
     Dosage: 1 MG, QD
  7. LASIX [Concomitant]
     Dosage: 40 MG, QD
     Route: 048
  8. SENNA-GEN [Concomitant]
     Dosage: 18.6 UNK, PRN
  9. THYROID TAB [Concomitant]
     Dosage: 0.05 UNK, QD
  10. ROXICET [Concomitant]
     Dosage: 5/325 PRN
  11. TEMAZEPAM [Concomitant]
     Dosage: 5 MG, QHS

REACTIONS (15)
  - BLOOD CREATININE INCREASED [None]
  - BLOOD UREA INCREASED [None]
  - CARDIAC FAILURE CONGESTIVE [None]
  - DEATH [None]
  - DISEASE PROGRESSION [None]
  - DISSEMINATED INTRAVASCULAR COAGULATION [None]
  - HAEMATOCRIT DECREASED [None]
  - HAEMOGLOBIN DECREASED [None]
  - HYPOTENSION [None]
  - MULTI-ORGAN FAILURE [None]
  - PLATELET COUNT DECREASED [None]
  - PULMONARY EMBOLISM [None]
  - PULMONARY HYPERTENSION [None]
  - RENAL FAILURE [None]
  - WHITE BLOOD CELL COUNT INCREASED [None]
